FAERS Safety Report 20894746 (Version 1)
Quarter: 2022Q2

REPORT INFORMATION
  Report Type: Spontaneous
  Country: IT (occurrence: IT)
  Receive Date: 20220531
  Receipt Date: 20220531
  Transmission Date: 20220720
  Serious: Yes (Other)
  Sender: FDA-Public Use
  Company Number: None

PATIENT
  Age: 53 Year
  Sex: Male

DRUGS (1)
  1. XALKORI [Suspect]
     Active Substance: CRIZOTINIB
     Indication: Sarcoma
     Dosage: 500 MG, 1X/DAY
     Route: 048
     Dates: start: 20200901

REACTIONS (4)
  - Pruritus [Recovering/Resolving]
  - Ulcer [Recovering/Resolving]
  - Injury [Recovering/Resolving]
  - Off label use [Unknown]

NARRATIVE: CASE EVENT DATE: 20200901
